FAERS Safety Report 21398675 (Version 1)
Quarter: 2022Q3

REPORT INFORMATION
  Report Type: Spontaneous
  Country: CA (occurrence: CA)
  Receive Date: 20220930
  Receipt Date: 20220930
  Transmission Date: 20221027
  Serious: Yes (Other)
  Sender: FDA-Public Use
  Company Number: CA-CELLTRION INC.-2022CA015846

PATIENT

DRUGS (3)
  1. INFLECTRA [Suspect]
     Active Substance: INFLIXIMAB-DYYB
     Indication: Crohn^s disease
     Dosage: 400 MG, INDUCTION AT Q 0,2,6 THEN EVERY 8 WEEKSNOT STARTED YET
     Route: 042
  2. METHOTREXATE [Concomitant]
     Active Substance: METHOTREXATE
     Dosage: 15 MG, WEEKLY
     Route: 065
  3. PREDNISONE [Concomitant]
     Active Substance: PREDNISONE
     Dosage: 1 DF, UNKNOWN DOSE
     Route: 065

REACTIONS (3)
  - Weight decreased [Unknown]
  - Malaise [Not Recovered/Not Resolved]
  - Feeling abnormal [Not Recovered/Not Resolved]

NARRATIVE: CASE EVENT DATE: 20220915
